FAERS Safety Report 7562289-X (Version None)
Quarter: 2011Q2

REPORT INFORMATION
  Report Type: 
  Country: None (occurrence: None)
  Receive Date: 20110622
  Receipt Date: 20110610
  Transmission Date: 20111010
  Serious: Yes (Other)
  Sender: FDA-Public Use
  Company Number: IT-ELI_LILLY_AND_COMPANY-IT201106004635

PATIENT

DRUGS (2)
  1. CISPLATIN [Concomitant]
     Dosage: 100
     Route: 042
     Dates: start: 20110209
  2. ALIMTA [Suspect]
     Indication: LUNG ADENOCARCINOMA
     Dosage: 600UNK
     Route: 042
     Dates: start: 20110209

REACTIONS (1)
  - INTESTINAL OBSTRUCTION [None]
